FAERS Safety Report 16168118 (Version 4)
Quarter: 2019Q3

REPORT INFORMATION
  Report Type: Spontaneous
  Country: US (occurrence: US)
  Receive Date: 20190408
  Receipt Date: 20190703
  Transmission Date: 20191004
  Serious: No
  Sender: FDA-Public Use
  Company Number: US-PFIZER INC-2019140066

PATIENT
  Age: 22 Year
  Sex: Female
  Weight: 50 kg

DRUGS (3)
  1. DEPO-PROVERA [Suspect]
     Active Substance: MEDROXYPROGESTERONE ACETATE
     Dosage: 150 MG, EVERY 3 MONTHS (1 ML EVERY 3 MONTHS)
     Dates: end: 20190304
  2. DEPO-PROVERA [Suspect]
     Active Substance: MEDROXYPROGESTERONE ACETATE
     Dosage: UNK
  3. DEPO-PROVERA [Suspect]
     Active Substance: MEDROXYPROGESTERONE ACETATE
     Indication: CONTRACEPTION
     Dosage: 150 MG, EVERY 3 MONTHS (1 ML EVERY 3 MONTHS)
     Route: 030
     Dates: start: 20181210

REACTIONS (2)
  - Maternal exposure during pregnancy [Unknown]
  - Expired product administered [Unknown]

NARRATIVE: CASE EVENT DATE: 20181210
